FAERS Safety Report 5994185-3 (Version None)
Quarter: 2008Q4

REPORT INFORMATION
  Report Type: 
  Country: None (occurrence: None)
  Receive Date: 20081212
  Receipt Date: 20080903
  Transmission Date: 20090506
  Serious: No
  Sender: FDA-Public Use
  Company Number: US-ABBOTT-08P-163-0473927-00

PATIENT
  Sex: Female

DRUGS (2)
  1. HUMIRA [Suspect]
     Indication: RHEUMATOID ARTHRITIS
     Dates: start: 20030101, end: 20080301
  2. HUMIRA [Suspect]
     Dates: start: 20080701

REACTIONS (5)
  - CLOSTRIDIUM DIFFICILE SEPSIS [None]
  - DRUG INEFFECTIVE [None]
  - KIDNEY INFECTION [None]
  - MALAISE [None]
  - NEPHROLITHIASIS [None]
